FAERS Safety Report 7110614-6 (Version None)
Quarter: 2010Q4

REPORT INFORMATION
  Report Type: 
  Country: None (occurrence: None)
  Receive Date: 20101118
  Receipt Date: 20101111
  Transmission Date: 20110411
  Serious: Yes (Hospitalization)
  Sender: FDA-Public Use
  Company Number: US-ABBOTT-10P-163-0684670-00

PATIENT
  Age: 43 Year
  Sex: Male

DRUGS (11)
  1. RITONAVIR [Suspect]
     Indication: HIV INFECTION
     Dosage: 100 MG DAILY
     Dates: start: 20090101
  2. RITONAVIR [Interacting]
  3. ARIPIPRAZOLE [Interacting]
     Indication: DEPRESSION
     Dosage: 40 MG DAILY
     Dates: start: 20090801, end: 20090827
  4. ARIPIPRAZOLE [Interacting]
     Indication: ANXIETY
     Dosage: 50 MG DAILY
     Dates: start: 20090827
  5. DARUNAVIR [Interacting]
     Indication: HIV INFECTION
     Dosage: 800 MG DAILY
     Dates: start: 20090101
  6. DARUNAVIR [Interacting]
  7. DULOXETINE [Interacting]
     Indication: DEPRESSION
     Dosage: 60 MG DAILY
  8. DULOXETINE [Interacting]
     Indication: ANXIETY
  9. EMTRICITABINE W/TENOFOVIR [Concomitant]
     Indication: HIV INFECTION
     Dosage: 200/300 MG/DAY
     Dates: start: 20090101
  10. EMTRICITABINE W/TENOFOVIR [Concomitant]
  11. BUSPIRONE HCL [Concomitant]
     Indication: PRODUCT USED FOR UNKNOWN INDICATION
     Dosage: 60 MG DAILY

REACTIONS (16)
  - ABDOMINAL PAIN [None]
  - ASTHENIA [None]
  - BACK PAIN [None]
  - COGNITIVE DISORDER [None]
  - CONFUSIONAL STATE [None]
  - COORDINATION ABNORMAL [None]
  - COUGH [None]
  - DRUG INTERACTION [None]
  - DRUG LEVEL INCREASED [None]
  - DRUG TOXICITY [None]
  - HEADACHE [None]
  - MUSCULOSKELETAL STIFFNESS [None]
  - OEDEMA PERIPHERAL [None]
  - PAIN [None]
  - PYREXIA [None]
  - VISION BLURRED [None]
